FAERS Safety Report 20002533 (Version 13)
Quarter: 2022Q1

REPORT INFORMATION
  Report Type: Report from Study
  Country: MX (occurrence: None)
  Receive Date: 20211027
  Receipt Date: 20220221
  Transmission Date: 20220423
  Serious: Yes (Other)
  Sender: FDA-Public Use
  Company Number: MX-ROCHE-2935394

PATIENT
  Age: 58 Year
  Sex: Female
  Weight: 48.2 kg

DRUGS (19)
  1. ATEZOLIZUMAB [Suspect]
     Active Substance: ATEZOLIZUMAB
     Indication: Malignant neoplasm of unknown primary site
     Dosage: ON 22/SEP/2021, SHE RECEIVED MOST RECENT DOSE OF ATEZOLIZUMAB 1200 MG PRIOR TO THE EVENT.
     Route: 041
     Dates: start: 20210922
  2. CARBOPLATIN [Suspect]
     Active Substance: CARBOPLATIN
     Indication: Malignant neoplasm of unknown primary site
     Dosage: 60-75 MG/M2, ONCE EVERY THREE WEEKS, FOR UP TO 9 CYCLES ?DATE OF LAST DOSE OF INDUCTION STUDY DRUG 1
     Route: 042
     Dates: start: 20210701
  3. CARBOPLATIN [Suspect]
     Active Substance: CARBOPLATIN
     Dosage: DOSE OF LAST TREATMENT STUDY DRUG 2 ADMINISTERED PRIOR TO SAE/AESI ONSET: 483 MG?DATE OF LAST DOSE O
     Route: 042
     Dates: start: 20210922
  4. GEMCITABINE [Suspect]
     Active Substance: GEMCITABINE
     Indication: Malignant neoplasm of unknown primary site
     Dosage: TWICE EVERY THREE WEEKS FOR UP TO 9 CYCLES?DOSE OF LAST INDUCTION STUDY DRUG 2 ADMINISTERED PRIOR T
     Route: 042
     Dates: start: 20210701
  5. GEMCITABINE [Suspect]
     Active Substance: GEMCITABINE
     Dosage: DOSE OF LAST TREATMENT STUDY DRUG 2 ADMINISTERED PRIOR TO SAE/AESI ONSET: 1380 MG?DATE OF LAST DOSE
     Route: 042
     Dates: start: 20210922
  6. ACETAMINOPHEN [Concomitant]
     Active Substance: ACETAMINOPHEN
     Indication: Pyrexia
     Route: 048
     Dates: start: 20210808, end: 20210902
  7. ACETAMINOPHEN [Concomitant]
     Active Substance: ACETAMINOPHEN
     Route: 048
     Dates: start: 20210921, end: 20210921
  8. ACETAMINOPHEN [Concomitant]
     Active Substance: ACETAMINOPHEN
     Route: 048
     Dates: start: 20210922, end: 20210924
  9. ACETAMINOPHEN [Concomitant]
     Active Substance: ACETAMINOPHEN
     Route: 048
     Dates: start: 20211005
  10. ACETAMINOPHEN [Concomitant]
     Active Substance: ACETAMINOPHEN
     Route: 048
     Dates: start: 20211012, end: 20211012
  11. ACETAMINOPHEN [Concomitant]
     Active Substance: ACETAMINOPHEN
     Route: 048
     Dates: start: 20211013
  12. AMOXICILLIN [Concomitant]
     Active Substance: AMOXICILLIN
     Indication: Pharyngitis
     Route: 048
     Dates: start: 20210921, end: 20210926
  13. CLAVULANIC ACID [Concomitant]
     Active Substance: CLAVULANIC ACID
     Indication: Pharyngitis
     Route: 048
     Dates: start: 20210921, end: 20210926
  14. DEXAMETHASONE [Concomitant]
     Active Substance: DEXAMETHASONE
     Indication: Abdominal pain
     Dates: start: 20211012
  15. KETOROLAC [Concomitant]
     Active Substance: KETOROLAC TROMETHAMINE
     Route: 030
     Dates: start: 20211012, end: 20211012
  16. MOXIFLOXACIN [Concomitant]
     Active Substance: MOXIFLOXACIN
     Indication: Lower respiratory tract infection
     Route: 048
     Dates: start: 20211228, end: 20220102
  17. AMBROXOL [Concomitant]
     Active Substance: AMBROXOL
     Indication: Lower respiratory tract infection
     Route: 048
     Dates: start: 20211228, end: 20211231
  18. LORATADINE [Concomitant]
     Active Substance: LORATADINE
     Indication: Lower respiratory tract infection
     Route: 048
     Dates: start: 20220126, end: 20220201
  19. BETAMETHASONE [Concomitant]
     Active Substance: BETAMETHASONE
     Indication: Lower respiratory tract infection
     Route: 048
     Dates: start: 20220126, end: 20220201

REACTIONS (1)
  - Drug-induced liver injury [Recovered/Resolved]

NARRATIVE: CASE EVENT DATE: 20211011
